FAERS Safety Report 9314380 (Version 1)
Quarter: 2013Q2

REPORT INFORMATION
  Report Type: Spontaneous
  Country: US (occurrence: None)
  Receive Date: 20130524
  Receipt Date: 20130524
  Transmission Date: 20140414
  Serious: Yes (Life-Threatening)
  Sender: FDA-Public Use
  Company Number: None

PATIENT
  Sex: 0

DRUGS (1)
  1. MIRENA [Suspect]

REACTIONS (7)
  - Device breakage [None]
  - Device dislocation [None]
  - Blood pressure increased [None]
  - Haematemesis [None]
  - Loss of employment [None]
  - Family stress [None]
  - Ulcer [None]
